FAERS Safety Report 8586349-X (Version None)
Quarter: 2012Q3

REPORT INFORMATION
  Report Type: 
  Country: None (occurrence: None)
  Receive Date: 20120810
  Receipt Date: 20120807
  Transmission Date: 20120928
  Serious: Yes (Other)
  Sender: FDA-Public Use
  Company Number: BR-ROCHE-1099136

PATIENT
  Sex: Female
  Weight: 78 kg

DRUGS (2)
  1. RIBAVIRIN [Concomitant]
     Indication: HEPATITIS C
  2. PEGASYS [Suspect]
     Indication: HEPATITIS C

REACTIONS (6)
  - PAIN [None]
  - NAUSEA [None]
  - DIZZINESS [None]
  - DISEASE PROGRESSION [None]
  - ASTHENIA [None]
  - DRUG INEFFECTIVE [None]
